FAERS Safety Report 7586027-X (Version None)
Quarter: 2011Q2

REPORT INFORMATION
  Report Type: 
  Country: None (occurrence: None)
  Receive Date: 20110624
  Receipt Date: 20110617
  Transmission Date: 20111010
  Serious: Yes (Hospitalization, Other)
  Sender: FDA-Public Use
  Company Number: 2006-150706-NL

PATIENT
  Age: 26 Year
  Sex: Female

DRUGS (4)
  1. DEPO-PROVERA [Suspect]
     Indication: CONTRACEPTION
     Dates: start: 20060331
  2. NUVARING [Suspect]
     Indication: CONTRACEPTION
     Dosage: 1 DF; VAG
     Route: 067
     Dates: start: 20041102, end: 20061022
  3. BIRTH CONTROL PILLS [Suspect]
     Indication: CONTRACEPTION
  4. IBUPROFEN [Concomitant]

REACTIONS (13)
  - PELVIC PAIN [None]
  - MENORRHAGIA [None]
  - DEEP VEIN THROMBOSIS [None]
  - NAUSEA [None]
  - PULMONARY EMBOLISM [None]
  - LOSS OF CONSCIOUSNESS [None]
  - MUSCLE SPASMS [None]
  - COUGH [None]
  - PYREXIA [None]
  - CHILLS [None]
  - CONSTIPATION [None]
  - HYPOTENSION [None]
  - LYMPHADENOPATHY [None]
